FAERS Safety Report 5714498-X (Version None)
Quarter: 2008Q2

REPORT INFORMATION
  Report Type: 
  Country: None (occurrence: None)
  Receive Date: 20080423
  Receipt Date: 20080416
  Transmission Date: 20081010
  Serious: Yes (Hospitalization)
  Sender: FDA-Public Use
  Company Number: PHHY2008JP05812

PATIENT
  Age: 67 Year
  Sex: Female

DRUGS (3)
  1. ZOMETA [Suspect]
     Dosage: 4 MG, UNK
     Route: 042
     Dates: start: 20060718, end: 20080401
  2. HERCEPTIN [Concomitant]
     Dosage: 100 MG, UNK
     Route: 042
     Dates: start: 20030624
  3. NAVELBINE [Concomitant]
     Dosage: 30 MG, UNK
     Route: 042
     Dates: start: 20071009

REACTIONS (3)
  - FACE OEDEMA [None]
  - OSTEONECROSIS [None]
  - PYREXIA [None]
